FAERS Safety Report 6535516-5 (Version None)
Quarter: 2010Q1

REPORT INFORMATION
  Report Type: 
  Country: None (occurrence: None)
  Receive Date: 20100111
  Receipt Date: 20100111
  Transmission Date: 20100710
  Serious: Yes (Life-Threatening, Hospitalization)
  Sender: FDA-Public Use
  Company Number: None

PATIENT
  Age: 83 Year
  Sex: Female
  Weight: 68.0396 kg

DRUGS (1)
  1. LEVAQUIN [Suspect]
     Indication: SINUSITIS
     Dosage: 1 TAB DAILY ORAL
     Route: 048
     Dates: start: 20090612, end: 20090619

REACTIONS (10)
  - ASTHENIA [None]
  - DIALYSIS [None]
  - DRUG PRESCRIBING ERROR [None]
  - HERPES ZOSTER [None]
  - HYPOPHAGIA [None]
  - HYPOTENSION [None]
  - LOSS OF CONSCIOUSNESS [None]
  - NAUSEA [None]
  - RENAL FAILURE [None]
  - VOMITING [None]
